FAERS Safety Report 9281838 (Version 3)
Quarter: 2013Q2

REPORT INFORMATION
  Report Type: Spontaneous
  Country: US (occurrence: US)
  Receive Date: 20130510
  Receipt Date: 20130614
  Transmission Date: 20140414
  Serious: Yes (Hospitalization, Other)
  Sender: FDA-Public Use
  Company Number: 2013SP003920

PATIENT
  Age: 79 Year
  Sex: Female

DRUGS (6)
  1. VANCOMYCIN [Suspect]
     Indication: PRODUCT USED FOR UNKNOWN INDICATION
  2. CIPROFLOXACIN [Suspect]
     Indication: PROPHYLAXIS URINARY TRACT INFECTION
  3. TORADOL [Suspect]
     Indication: PRODUCT USED FOR UNKNOWN INDICATION
  4. ASPIRIN BAYER [Suspect]
     Indication: PRODUCT USED FOR UNKNOWN INDICATION
  5. ATORVASTATIN CALCIUM [Suspect]
     Indication: PRODUCT USED FOR UNKNOWN INDICATION
  6. SPIRONOLACTONE [Suspect]
     Indication: PRODUCT USED FOR UNKNOWN INDICATION

REACTIONS (16)
  - Drug reaction with eosinophilia and systemic symptoms [Recovering/Resolving]
  - Cerebrovascular accident [Recovered/Resolved]
  - Embolism [Recovered/Resolved]
  - Cerebral ischaemia [Recovered/Resolved]
  - Eosinophilia [Recovering/Resolving]
  - Delirium [Recovered/Resolved]
  - VIIth nerve paralysis [Recovered/Resolved]
  - Somnolence [Recovered/Resolved]
  - Leukocytosis [Recovering/Resolving]
  - Rash maculo-papular [Recovering/Resolving]
  - Pyrexia [Recovered/Resolved]
  - Oliguria [Recovering/Resolving]
  - Dysarthria [Recovered/Resolved]
  - Rash erythematous [Recovering/Resolving]
  - Skin plaque [Recovering/Resolving]
  - Liver function test abnormal [Recovering/Resolving]
